FAERS Safety Report 11449294 (Version 3)
Quarter: 2015Q4

REPORT INFORMATION
  Report Type: Spontaneous
  Country: CH (occurrence: CH)
  Receive Date: 20150902
  Receipt Date: 20151020
  Transmission Date: 20160304
  Serious: Yes (Hospitalization, Other)
  Sender: FDA-Public Use
  Company Number: CH-GILEAD-2015-0170041

PATIENT
  Age: 77 Year
  Sex: Female

DRUGS (17)
  1. DILZEM [Concomitant]
     Active Substance: DILTIAZEM
     Dosage: 90 MG, QD
  2. SIMVASTATIN. [Concomitant]
     Active Substance: SIMVASTATIN
     Dosage: 40 MG, QD
  3. RANOLAZINE [Suspect]
     Active Substance: RANOLAZINE
     Dosage: 375 MG, QD
     Route: 065
     Dates: start: 201407, end: 20150523
  4. RANOLAZINE [Suspect]
     Active Substance: RANOLAZINE
     Dosage: 500 MG, BID
     Route: 065
     Dates: start: 201506, end: 20150619
  5. RANOLAZINE [Suspect]
     Active Substance: RANOLAZINE
     Dosage: 250 MG, BID
     Route: 065
     Dates: start: 20150619, end: 20150717
  6. ASPIRIN CARDIO [Concomitant]
     Active Substance: ASPIRIN
     Dosage: 100 MG, QD
  7. METAMUCIL [Concomitant]
     Active Substance: PLANTAGO SEED
  8. COVERSUM N [Concomitant]
     Active Substance: PERINDOPRIL
     Dosage: 2.5 MG, QD
     Route: 065
     Dates: start: 20150611
  9. REMERON [Concomitant]
     Active Substance: MIRTAZAPINE
     Dosage: 30 MG, QD
  10. DAFALGAN [Concomitant]
     Active Substance: ACETAMINOPHEN
  11. RANOLAZINE [Suspect]
     Active Substance: RANOLAZINE
     Indication: PRINZMETAL ANGINA
     Dosage: 375 MG, BID
     Route: 065
     Dates: start: 20150524, end: 201506
  12. PANTOZOL [Concomitant]
     Active Substance: PANTOPRAZOLE SODIUM
     Dosage: 17.142 MG, UNK
  13. VALIUM [Concomitant]
     Active Substance: DIAZEPAM
     Dosage: 5 MG, QD
  14. CELLUFLUID [Concomitant]
  15. NITRODERM [Concomitant]
     Active Substance: NITROGLYCERIN
     Dosage: 5 MG, QD
  16. NITROGLYCERIN STREULI [Concomitant]
     Dosage: 0.8 MG, QD
  17. ULTRACORTENOL                      /00016204/ [Concomitant]

REACTIONS (6)
  - Head discomfort [Recovering/Resolving]
  - Off label use [Recovered/Resolved]
  - Hypoaesthesia [Recovered/Resolved]
  - Paraesthesia [Recovering/Resolving]
  - Hypoaesthesia oral [Recovering/Resolving]
  - Headache [Recovering/Resolving]

NARRATIVE: CASE EVENT DATE: 201506
